FAERS Safety Report 6151555-0 (Version None)
Quarter: 2009Q2

REPORT INFORMATION
  Report Type: 
  Country: None (occurrence: None)
  Receive Date: 20090410
  Receipt Date: 20090408
  Transmission Date: 20091009
  Serious: Yes (Hospitalization, Other)
  Sender: FDA-Public Use
  Company Number: FR-WYE-G03475709

PATIENT
  Sex: Female

DRUGS (16)
  1. EFFEXOR [Suspect]
     Indication: DEPRESSIVE SYMPTOM
     Dosage: UNKNOWN
     Route: 048
     Dates: start: 20080101
  2. CARDENSIEL [Suspect]
     Dosage: UNKNOWN
     Route: 048
     Dates: start: 20071201
  3. TRIATEC [Suspect]
     Dosage: UNKNOWN
     Dates: start: 20071201
  4. LASIX [Suspect]
     Dosage: UNKNOWN
     Dates: start: 20071201
  5. HEMIGOXINE NATIVELLE [Suspect]
     Dosage: UNKNOWN
     Dates: start: 20071201
  6. ATARAX [Suspect]
     Dosage: UNKNOWN
     Dates: start: 20071201
  7. BIPHETAMINE [Suspect]
     Indication: WEIGHT CONTROL
     Dosage: UNKNOWN
     Dates: start: 19780101, end: 19860101
  8. SINGULAIR [Concomitant]
     Dosage: UNKNOWN
  9. TRANXENE [Concomitant]
     Dosage: UNKNOWN
  10. LAROXYL [Concomitant]
     Dosage: UNKNOWN
  11. OGAST [Concomitant]
     Dosage: UNKNOWN
  12. DETENSIEL [Concomitant]
     Dosage: UNKNOWN
  13. CANDESARTAN CILEXETIL [Concomitant]
     Dosage: UNKNOWN
  14. KARDEGIC [Concomitant]
     Dosage: UNKNOWN
  15. ELISOR [Concomitant]
     Dosage: UNKNOWN
  16. MEDIATOR [Suspect]
     Indication: WEIGHT CONTROL
     Dosage: BETWEEN 300 MG AND 450 MG TOTAL DAILY
     Route: 048
     Dates: start: 20070901, end: 20081201

REACTIONS (4)
  - AORTIC VALVE INCOMPETENCE [None]
  - CONDITION AGGRAVATED [None]
  - MITRAL VALVE INCOMPETENCE [None]
  - TRICUSPID VALVE INCOMPETENCE [None]
